FAERS Safety Report 5307764-3 (Version None)
Quarter: 2007Q2

REPORT INFORMATION
  Report Type: 
  Country: None (occurrence: None)
  Receive Date: 20070425
  Receipt Date: 20070418
  Transmission Date: 20071010
  Serious: Yes (Hospitalization)
  Sender: FDA-Public Use
  Company Number: JP-ALLERGAN-0704024US

PATIENT
  Age: 34 Year
  Sex: Female

DRUGS (2)
  1. ALESION TABLET [Suspect]
     Indication: DRUG USE FOR UNKNOWN INDICATION
     Dosage: 560 MG, SINGLE
     Route: 048
     Dates: start: 20060530, end: 20060530
  2. UNIPHYL [Suspect]
     Indication: DRUG USE FOR UNKNOWN INDICATION
     Dosage: 5600 MG, SINGLE
     Route: 048
     Dates: start: 20060530, end: 20060530

REACTIONS (9)
  - CARDIOTOXICITY [None]
  - CHEST DISCOMFORT [None]
  - DEPRESSED LEVEL OF CONSCIOUSNESS [None]
  - ELECTROCARDIOGRAM QT PROLONGED [None]
  - HYPOTENSION [None]
  - INTENTIONAL OVERDOSE [None]
  - PALPITATIONS [None]
  - SUICIDE ATTEMPT [None]
  - TACHYCARDIA [None]
